FAERS Safety Report 16211976 (Version 1)
Quarter: 2019Q2

REPORT INFORMATION
  Report Type: Spontaneous
  Country: US (occurrence: US)
  Receive Date: 20190417
  Receipt Date: 20190417
  Transmission Date: 20190711
  Serious: Yes (Hospitalization)
  Sender: FDA-Public Use
  Company Number: None

PATIENT
  Sex: Female

DRUGS (7)
  1. FOLIC ACID. [Concomitant]
     Active Substance: FOLIC ACID
  2. IBUPROFEN. [Concomitant]
     Active Substance: IBUPROFEN
  3. HUMIRA [Suspect]
     Active Substance: ADALIMUMAB
     Indication: RHEUMATOID ARTHRITIS
     Dosage: ?          OTHER FREQUENCY:Q14 DAYS;?
     Route: 058
  4. METHOTREXATE. [Concomitant]
     Active Substance: METHOTREXATE
  5. HYDROXYCHLOR [Concomitant]
     Active Substance: HYDROXYCHLOROQUINE
  6. PROAIR HFA [Concomitant]
     Active Substance: ALBUTEROL SULFATE
  7. PHENTERMINE. [Concomitant]
     Active Substance: PHENTERMINE

REACTIONS (2)
  - Chest pain [None]
  - Asthma [None]

NARRATIVE: CASE EVENT DATE: 20190401
